FAERS Safety Report 7545803-X (Version None)
Quarter: 2011Q2

REPORT INFORMATION
  Report Type: 
  Country: None (occurrence: None)
  Receive Date: 20110614
  Receipt Date: 20110524
  Transmission Date: 20111010
  Serious: Yes (Hospitalization, Other)
  Sender: FDA-Public Use
  Company Number: US-BAYER-201030180NA

PATIENT
  Age: 25 Year
  Sex: Female
  Weight: 81.633 kg

DRUGS (5)
  1. YASMIN [Suspect]
     Indication: CONTRACEPTION
     Dosage: UNK UNK, UNK
     Route: 048
     Dates: start: 20030101, end: 20070101
  2. SERTRALINE HYDROCHLORIDE [Concomitant]
     Dosage: 100 MG, UNK
  3. ZOLOFT [Concomitant]
     Indication: ANXIETY
     Dosage: UNK
     Dates: start: 20060101, end: 20070101
  4. WELLBUTRIN [Concomitant]
     Indication: ANXIETY
     Dosage: UNK
     Dates: start: 20060101, end: 20070101
  5. ADVIL LIQUI-GELS [Concomitant]
     Dosage: UNK
     Dates: start: 20010101

REACTIONS (6)
  - MALAISE [None]
  - DYSPEPSIA [None]
  - ABDOMINAL PAIN UPPER [None]
  - CHOLECYSTITIS CHRONIC [None]
  - VOMITING [None]
  - GALLBLADDER DISORDER [None]
